FAERS Safety Report 17120119 (Version 1)
Quarter: 2019Q4

REPORT INFORMATION
  Report Type: Spontaneous
  Country: DE (occurrence: DE)
  Receive Date: 20191206
  Receipt Date: 20191206
  Transmission Date: 20200122
  Serious: Yes (Hospitalization)
  Sender: FDA-Public Use
  Company Number: NVSC2019DE054019

PATIENT
  Age: 77 Year
  Sex: Female

DRUGS (2)
  1. REVLIMID [Suspect]
     Active Substance: LENALIDOMIDE
     Indication: PLASMA CELL MYELOMA
     Dosage: 25 MG, QW
     Route: 048
     Dates: start: 20180409, end: 20180821
  2. DEXAMETHASONE. [Suspect]
     Active Substance: DEXAMETHASONE
     Indication: PLASMA CELL MYELOMA
     Dosage: 8 MG, QW
     Route: 048
     Dates: start: 20180409, end: 20180822

REACTIONS (2)
  - Pulmonary embolism [Recovered/Resolved]
  - Embolic pneumonia [Recovered/Resolved]

NARRATIVE: CASE EVENT DATE: 20190630
